FAERS Safety Report 6836360-1 (Version None)
Quarter: 2010Q3

REPORT INFORMATION
  Report Type: 
  Country: None (occurrence: None)
  Receive Date: 20100713
  Receipt Date: 20100708
  Transmission Date: 20110219
  Serious: Yes (Death, Hospitalization)
  Sender: FDA-Public Use
  Company Number: US-CELGENEUS-163-21880-10062051

PATIENT
  Sex: Male

DRUGS (1)
  1. REVLIMID [Suspect]
     Route: 048
     Dates: start: 20100218

REACTIONS (5)
  - DEATH [None]
  - HEART RATE INCREASED [None]
  - OEDEMA PERIPHERAL [None]
  - ORGAN FAILURE [None]
  - PULMONARY OEDEMA [None]
